FAERS Safety Report 7306076-6 (Version None)
Quarter: 2011Q1

REPORT INFORMATION
  Report Type: 
  Country: None (occurrence: None)
  Receive Date: 20110222
  Receipt Date: 20110217
  Transmission Date: 20110831
  Serious: Yes (Hospitalization)
  Sender: FDA-Public Use
  Company Number: US-GILEAD-2011-0036674

PATIENT
  Age: 33 Year
  Sex: Female

DRUGS (5)
  1. VELETRI [Concomitant]
  2. TRACLEER [Concomitant]
  3. REVATIO [Concomitant]
  4. FLOLAN [Concomitant]
  5. LETAIRIS [Suspect]
     Indication: PRODUCT USED FOR UNKNOWN INDICATION
     Route: 048
     Dates: start: 20080821

REACTIONS (1)
  - CHEST PAIN [None]
